FAERS Safety Report 9912186 (Version 2)
Quarter: 2014Q1

REPORT INFORMATION
  Report Type: Spontaneous
  Country: RU (occurrence: RU)
  Receive Date: 20140220
  Receipt Date: 20140303
  Transmission Date: 20141002
  Serious: Yes (Other)
  Sender: FDA-Public Use
  Company Number: RU-AMGEN-RUSSP2014010902

PATIENT
  Age: 60 Year
  Sex: Female
  Weight: 95 kg

DRUGS (11)
  1. MIMPARA [Suspect]
     Indication: HYPERPARATHYROIDISM SECONDARY
     Dosage: 30 MG, QD
     Route: 048
     Dates: start: 201310, end: 201402
  2. MIMPARA [Suspect]
     Indication: HYPERCALCAEMIA
  3. CYCLOSPORINE [Concomitant]
     Indication: IMMUNOSUPPRESSION
     Dosage: 140 UNK, BID
     Route: 048
     Dates: start: 200710
  4. MYFORTIC [Concomitant]
     Indication: IMMUNOSUPPRESSION
     Dosage: 100-125 MG, QD
     Route: 048
     Dates: start: 200710
  5. PREDNISOLONE [Concomitant]
     Indication: IMMUNOSUPPRESSION
     Dosage: 5 MG, QD
     Route: 048
     Dates: start: 200710
  6. ATORVASTATIN [Concomitant]
     Indication: BLOOD CHOLESTEROL ABNORMAL
     Dosage: 20 MG, QD
     Route: 048
     Dates: start: 200710
  7. LOSARTAN [Concomitant]
     Indication: HYPERTENSION
     Dosage: 100 MG, QD
     Route: 048
     Dates: start: 200710
  8. PHYSIOTENS [Concomitant]
     Indication: HYPERTENSION
     Dosage: 0.4 UNK, QD
     Route: 048
     Dates: start: 200710
  9. CONCOR [Concomitant]
     Indication: HYPERTENSION
     Dosage: 2.5 UNK, QD
     Route: 048
     Dates: start: 200710
  10. FELODIPINE [Concomitant]
     Indication: HYPERTENSION
     Dosage: 5 MG, QD
     Route: 048
     Dates: start: 200710
  11. FELODIPINE [Concomitant]
     Indication: HYPERTENSION

REACTIONS (5)
  - Asphyxia [Recovering/Resolving]
  - Nasal obstruction [Recovering/Resolving]
  - Pruritus [Recovering/Resolving]
  - Nasal dryness [Recovering/Resolving]
  - Dry throat [Recovering/Resolving]
